FAERS Safety Report 6152149-3 (Version None)
Quarter: 2009Q2

REPORT INFORMATION
  Report Type: 
  Country: None (occurrence: None)
  Receive Date: 20090410
  Receipt Date: 20090402
  Transmission Date: 20091009
  Serious: Yes (Disabling)
  Sender: FDA-Public Use
  Company Number: DE-BAXTER-2009BH004503

PATIENT
  Age: 52 Year
  Sex: Female
  Weight: 56 kg

DRUGS (5)
  1. SUPRANE [Suspect]
     Indication: ACCIDENTAL EXPOSURE
     Route: 065
     Dates: start: 19950101, end: 20090101
  2. SEVOFLURANE [Suspect]
     Indication: ACCIDENTAL EXPOSURE
     Route: 065
     Dates: start: 19950101, end: 20090101
  3. ISOFLURANE [Suspect]
     Indication: ACCIDENTAL EXPOSURE
     Route: 065
     Dates: start: 19950101, end: 20090101
  4. ENFLURAN [Suspect]
     Indication: ACCIDENTAL EXPOSURE
     Route: 065
     Dates: start: 19950101, end: 20090101
  5. PHYTO-STROL [Concomitant]
     Indication: MENOPAUSE
     Route: 065
     Dates: start: 20080101, end: 20090101

REACTIONS (3)
  - ACCIDENTAL EXPOSURE [None]
  - HEPATIC ENZYME INCREASED [None]
  - HEPATITIS [None]
